FAERS Safety Report 11796918 (Version 3)
Quarter: 2015Q4

REPORT INFORMATION
  Report Type: Spontaneous
  Country: JP (occurrence: JP)
  Receive Date: 20151203
  Receipt Date: 20151229
  Transmission Date: 20160305
  Serious: Yes (Hospitalization)
  Sender: FDA-Public Use
  Company Number: JP-BAUSCH-BL-2015-028908

PATIENT
  Age: 83 Year
  Sex: Male
  Weight: 42 kg

DRUGS (1)
  1. CLENAFIN TOPICAL SOLUTION 10% FOR NAIL [Suspect]
     Active Substance: EFINACONAZOLE
     Indication: DERMATOPHYTOSIS OF NAIL
     Route: 061
     Dates: start: 20141217, end: 20150831

REACTIONS (2)
  - Dermatitis contact [Recovering/Resolving]
  - Cellulitis [Recovering/Resolving]

NARRATIVE: CASE EVENT DATE: 20150831
